FAERS Safety Report 23794914 (Version 1)
Quarter: 2024Q2

REPORT INFORMATION
  Report Type: Spontaneous
  Country: CA (occurrence: CA)
  Receive Date: 20240429
  Receipt Date: 20240429
  Transmission Date: 20240715
  Serious: Yes (Other)
  Sender: FDA-Public Use
  Company Number: CA-B.Braun Medical Inc.-2156200

PATIENT
  Age: 62 Year
  Sex: Male

DRUGS (12)
  1. ACETAMINOPHEN [Suspect]
     Active Substance: ACETAMINOPHEN
     Indication: Premedication
  2. ANAKINRA [Suspect]
     Active Substance: ANAKINRA
  3. OXALIPLATIN [Suspect]
     Active Substance: OXALIPLATIN
  4. LEUCOVORIN CALCIUM [Suspect]
     Active Substance: LEUCOVORIN CALCIUM
  5. FLUOROURACIL [Suspect]
     Active Substance: FLUOROURACIL
  6. SODIUM CHLORIDE [Suspect]
     Active Substance: SODIUM CHLORIDE
  7. ONDANSETRON [Suspect]
     Active Substance: ONDANSETRON
  8. MONTELUKAST [Suspect]
     Active Substance: MONTELUKAST SODIUM
  9. IBUPROFEN [Suspect]
     Active Substance: IBUPROFEN
  10. FAMOTIDINE [Suspect]
     Active Substance: FAMOTIDINE
  11. DEXAMETHASONE [Suspect]
     Active Substance: DEXAMETHASONE
  12. CETIRIZINE HYDROCHLORIDE [Suspect]
     Active Substance: CETIRIZINE HYDROCHLORIDE

REACTIONS (5)
  - Alpha tumour necrosis factor increased [Recovered/Resolved]
  - Off label use [Recovered/Resolved]
  - Monocyte chemotactic protein-1 increased [Recovered/Resolved]
  - Interleukin level increased [Recovered/Resolved]
  - Cytokine release syndrome [Recovered/Resolved]
